FAERS Safety Report 17554629 (Version 5)
Quarter: 2020Q4

REPORT INFORMATION
  Report Type: Report from Study
  Country: US (occurrence: US)
  Receive Date: 20200318
  Receipt Date: 20201224
  Transmission Date: 20210113
  Serious: No
  Sender: FDA-Public Use
  Company Number: NVSC2020US077758

PATIENT
  Age: 52 Year
  Sex: Female

DRUGS (1)
  1. MAYZENT [Suspect]
     Active Substance: SIPONIMOD
     Indication: RELAPSING-REMITTING MULTIPLE SCLEROSIS
     Dosage: 2 MG, QD
     Route: 048
     Dates: start: 20200120

REACTIONS (5)
  - Viral rash [Unknown]
  - Ageusia [Recovering/Resolving]
  - COVID-19 [Recovering/Resolving]
  - Pityriasis rosea [Unknown]
  - Acne [Unknown]

NARRATIVE: CASE EVENT DATE: 20200306
